FAERS Safety Report 17281891 (Version 1)
Quarter: 2020Q1

REPORT INFORMATION
  Report Type: Spontaneous
  Country: US (occurrence: US)
  Receive Date: 20191228
  Receipt Date: 20191228
  Transmission Date: 20200409
  Serious: No
  Sender: FDA-Public Use
  Company Number: None

PATIENT
  Age: 47 Year
  Sex: Male

DRUGS (1)
  1. MAVYRET [Suspect]
     Active Substance: GLECAPREVIR\PIBRENTASVIR
     Dosage: 100-40MG DAILY ORAL
     Route: 048
     Dates: start: 201911

REACTIONS (4)
  - Nausea [None]
  - Night sweats [None]
  - Influenza like illness [None]
  - Fatigue [None]

NARRATIVE: CASE EVENT DATE: 20191228
